FAERS Safety Report 17552287 (Version 2)
Quarter: 2020Q2

REPORT INFORMATION
  Report Type: Spontaneous
  Country: SE (occurrence: SE)
  Receive Date: 20200317
  Receipt Date: 20200515
  Transmission Date: 20200713
  Serious: Yes (Death, Life-Threatening, Other)
  Sender: FDA-Public Use
  Company Number: SE-AMGEN-SWESP2020040149

PATIENT

DRUGS (6)
  1. CARFILZOMIB [Suspect]
     Active Substance: CARFILZOMIB
     Indication: LIGHT CHAIN DISEASE
  2. DEXAMETHASONE. [Concomitant]
     Active Substance: DEXAMETHASONE
     Indication: LIGHT CHAIN DISEASE
  3. CARFILZOMIB [Suspect]
     Active Substance: CARFILZOMIB
     Indication: AMYLOIDOSIS
  4. DEXAMETHASONE. [Concomitant]
     Active Substance: DEXAMETHASONE
     Indication: PLASMA CELL MYELOMA
     Dosage: UNK
  5. DEXAMETHASONE. [Concomitant]
     Active Substance: DEXAMETHASONE
     Indication: AMYLOIDOSIS
  6. CARFILZOMIB [Suspect]
     Active Substance: CARFILZOMIB
     Indication: PLASMA CELL MYELOMA
     Dosage: UNK, ON DAYS 1, 2, 8, 9, 15 AND 16 OF A 28-DAY CYCLE
     Route: 042

REACTIONS (12)
  - Plasma cell myeloma [Fatal]
  - Haemolysis [Unknown]
  - Thrombotic microangiopathy [Unknown]
  - Pulmonary oedema [Fatal]
  - Chronic kidney disease [Unknown]
  - Cardiac disorder [Unknown]
  - Haemolytic anaemia [Unknown]
  - Death [Fatal]
  - Myocardial infarction [Fatal]
  - Off label use [Unknown]
  - Disease progression [Unknown]
  - Lung disorder [Unknown]
